FAERS Safety Report 18999510 (Version 1)
Quarter: 2021Q1

REPORT INFORMATION
  Report Type: Spontaneous
  Country: AU (occurrence: AU)
  Receive Date: 20210311
  Receipt Date: 20210311
  Transmission Date: 20210420
  Serious: Yes (Hospitalization)
  Sender: FDA-Public Use
  Company Number: AU-COLLEGIUM PHARMACEUTICAL, INC.-2021CGM00253

PATIENT
  Age: 54 Year
  Sex: Female

DRUGS (10)
  1. DULOXETINE. [Concomitant]
     Active Substance: DULOXETINE
     Dosage: UNK
     Route: 065
  2. PROPRANOLOL [Concomitant]
     Active Substance: PROPRANOLOL HYDROCHLORIDE
     Dosage: UNK
     Route: 065
  3. AMITRIPTYLINE [Concomitant]
     Active Substance: AMITRIPTYLINE
     Dosage: UNK
     Route: 065
  4. ASPIRIN. [Concomitant]
     Active Substance: ASPIRIN
     Dosage: UNK
     Route: 065
  5. ELETRIPTAN. [Concomitant]
     Active Substance: ELETRIPTAN
     Dosage: 80 MG, 1X/DAY, AS NEEDED
     Route: 065
  6. TAPENTADOL [Suspect]
     Active Substance: TAPENTADOL
     Indication: BACK PAIN
     Dosage: 200 MG, 2X/DAY
     Route: 065
  7. TAPENTADOL [Suspect]
     Active Substance: TAPENTADOL
     Dosage: 50 UNK
     Route: 065
  8. FUROSEMIDE. [Concomitant]
     Active Substance: FUROSEMIDE
     Dosage: UNK
     Route: 065
  9. PREGABALIN. [Suspect]
     Active Substance: PREGABALIN
     Indication: BACK PAIN
     Dosage: 75 MG, 2X/DAY
     Route: 065
  10. AMILORIDE HCL/HYDROCHLOROTHIAZIDE [Concomitant]
     Dosage: UNK
     Route: 065

REACTIONS (8)
  - Encephalopathy [Recovered/Resolved]
  - Confusional state [Recovered/Resolved]
  - Depressed level of consciousness [Recovered/Resolved]
  - Agitation [Recovered/Resolved]
  - Drug interaction [Recovered/Resolved]
  - Epilepsy [Recovered/Resolved]
  - Fatigue [Recovered/Resolved]
  - Somnolence [Recovered/Resolved]
